FAERS Safety Report 8060980-2 (Version None)
Quarter: 2012Q1

REPORT INFORMATION
  Report Type: 
  Country: None (occurrence: None)
  Receive Date: 20120120
  Receipt Date: 20120111
  Transmission Date: 20120608
  Serious: Yes (Hospitalization, Other)
  Sender: FDA-Public Use
  Company Number: US-MERCK-1109USA00860

PATIENT
  Age: 53 Year
  Sex: Female

DRUGS (10)
  1. NEXIUM [Concomitant]
     Route: 065
     Dates: start: 20010101
  2. FOSAMAX [Suspect]
     Indication: OSTEOPENIA
     Route: 048
     Dates: start: 20010430, end: 20060601
  3. FOSAMAX [Suspect]
     Route: 048
     Dates: start: 20081101, end: 20100420
  4. PREVACID [Concomitant]
     Route: 065
     Dates: start: 20010101
  5. FOSAMAX [Suspect]
     Indication: OSTEOPOROSIS
     Route: 048
     Dates: start: 20010430, end: 20060601
  6. VITAMINS (UNSPECIFIED) [Concomitant]
     Route: 065
  7. FOSAMAX [Suspect]
     Route: 048
     Dates: start: 20061208, end: 20100106
  8. FOSAMAX [Suspect]
     Route: 048
     Dates: start: 20061208, end: 20100106
  9. CALCIUM (UNSPECIFIED) [Concomitant]
     Route: 065
  10. PAXIL [Concomitant]
     Indication: ANXIETY
     Route: 065
     Dates: start: 20010101

REACTIONS (27)
  - PANCREATITIS [None]
  - DRUG HYPERSENSITIVITY [None]
  - VITAMIN D DEFICIENCY [None]
  - FRACTURE DELAYED UNION [None]
  - ANXIETY [None]
  - INSULINOMA [None]
  - DIVERTICULITIS [None]
  - LIMB INJURY [None]
  - HYPERCHOLESTEROLAEMIA [None]
  - DEPRESSION [None]
  - FEMUR FRACTURE [None]
  - URINARY TRACT INFECTION [None]
  - ANAEMIA [None]
  - HYPERTENSION [None]
  - FATIGUE [None]
  - DIVERTICULUM [None]
  - NEPHROLITHIASIS [None]
  - ANAEMIA POSTOPERATIVE [None]
  - CEREBROVASCULAR ACCIDENT [None]
  - ABDOMINAL DISCOMFORT [None]
  - VIRAL INFECTION [None]
  - UPPER RESPIRATORY TRACT INFECTION [None]
  - HEPATIC STEATOSIS [None]
  - LOW TURNOVER OSTEOPATHY [None]
  - GASTROOESOPHAGEAL REFLUX DISEASE [None]
  - PAIN IN EXTREMITY [None]
  - HAEMORRHOIDS [None]
